FAERS Safety Report 10334431 (Version 1)
Quarter: 2014Q3

REPORT INFORMATION
  Report Type: Spontaneous
  Country: CA (occurrence: CA)
  Receive Date: 20140723
  Receipt Date: 20140723
  Transmission Date: 20150326
  Serious: Yes (Other)
  Sender: FDA-Public Use
  Company Number: CA-SA-2014SA095793

PATIENT
  Age: 82 Year
  Sex: Male

DRUGS (4)
  1. PREDNISONE. [Concomitant]
     Active Substance: PREDNISONE
     Route: 048
  2. DECADRON [Concomitant]
     Active Substance: DEXAMETHASONE
     Dosage: 3 DOSES PRE IV INFUSION
  3. JEVTANA [Suspect]
     Active Substance: CABAZITAXEL
     Indication: PRODUCT USED FOR UNKNOWN INDICATION
     Route: 065
  4. TAXOTERE [Suspect]
     Active Substance: DOCETAXEL
     Indication: PROSTATE CANCER
     Route: 042
     Dates: start: 20130907, end: 20131008

REACTIONS (3)
  - Pyrexia [Recovered/Resolved]
  - Feeling of body temperature change [Recovered/Resolved]
  - Angioedema [Recovered/Resolved]

NARRATIVE: CASE EVENT DATE: 20131008
